FAERS Safety Report 7801883-5 (Version None)
Quarter: 2011Q4

REPORT INFORMATION
  Report Type: 
  Country: None (occurrence: None)
  Receive Date: 20111007
  Receipt Date: 20111004
  Transmission Date: 20120403
  Serious: Yes (Hospitalization, Congenital Anomaly, Other)
  Sender: FDA-Public Use
  Company Number: US-PFIZER INC-2011158466

PATIENT
  Sex: Male
  Weight: 3.6 kg

DRUGS (3)
  1. EFFEXOR XR [Suspect]
     Indication: DEPRESSION
     Dosage: UNK
     Route: 064
     Dates: start: 20060101
  2. PRENATAL VITAMINS [Concomitant]
     Dosage: UNK
     Route: 064
  3. PREVACID [Concomitant]
     Dosage: 30 MG, UNK
     Dates: start: 20080904

REACTIONS (16)
  - INTRAVENTRICULAR HAEMORRHAGE [None]
  - PERSISTENT LEFT SUPERIOR VENA CAVA [None]
  - INTESTINAL MALROTATION [None]
  - ATRIOVENTRICULAR SEPTAL DEFECT [None]
  - UNIVENTRICULAR HEART [None]
  - DEXTROCARDIA [None]
  - CONGENITAL MEGACOLON [None]
  - CONGENITAL AORTIC ANOMALY [None]
  - MATERNAL EXPOSURE DURING PREGNANCY [None]
  - DOUBLE OUTLET RIGHT VENTRICLE [None]
  - COARCTATION OF THE AORTA [None]
  - ASPLENIA [None]
  - VENTRICULAR SEPTAL DEFECT [None]
  - CARDIOMEGALY [None]
  - HETEROTAXIA [None]
  - MECONIUM PLUG SYNDROME [None]
